FAERS Safety Report 8212817-6 (Version None)
Quarter: 2012Q1

REPORT INFORMATION
  Report Type: 
  Country: None (occurrence: None)
  Receive Date: 20120315
  Receipt Date: 20120307
  Transmission Date: 20120608
  Serious: Yes (Other)
  Sender: FDA-Public Use
  Company Number: PHHY2012FR020716

PATIENT
  Sex: Female

DRUGS (3)
  1. PACLITAXEL [Suspect]
     Indication: SQUAMOUS CELL CARCINOMA
     Dosage: 70 MG, QW
     Route: 042
     Dates: start: 20120301, end: 20120301
  2. PACLITAXEL [Suspect]
     Indication: CHEMOTHERAPY
  3. CARBOPLATIN [Concomitant]
     Dosage: 160 MG, UNK

REACTIONS (4)
  - BLOOD PRESSURE INCREASED [None]
  - MALAISE [None]
  - SUFFOCATION FEELING [None]
  - URTICARIA [None]
